FAERS Safety Report 5247670-6 (Version None)
Quarter: 2007Q1

REPORT INFORMATION
  Report Type: 
  Country: None (occurrence: None)
  Receive Date: 20070220
  Receipt Date: 20070207
  Transmission Date: 20070707
  Serious: Yes (Hospitalization)
  Sender: FDA-Public Use
  Company Number: 235837

PATIENT
  Age: 3 Year
  Sex: Male
  Weight: 9.1 kg

DRUGS (4)
  1. NUTROPIN AQ [Suspect]
     Indication: GROWTH HORMONE DEFICIENCY
     Dosage: 0.5 MG, QD, SUBCUTANEOUS 0.4 MG, QD, SUBCUTANEOUS
     Route: 058
     Dates: start: 20040315, end: 20061125
  2. NUTROPIN AQ [Suspect]
     Indication: GROWTH HORMONE DEFICIENCY
     Dosage: 0.5 MG, QD, SUBCUTANEOUS 0.4 MG, QD, SUBCUTANEOUS
     Route: 058
     Dates: start: 20061227
  3. XOPENEX [Concomitant]
  4. PULMICORT [Concomitant]

REACTIONS (4)
  - CONGENITAL APLASTIC ANAEMIA [None]
  - COUGH [None]
  - FLUID INTAKE REDUCED [None]
  - PYREXIA [None]
